FAERS Safety Report 20430420 (Version 1)
Quarter: 2022Q1

REPORT INFORMATION
  Report Type: Report from Study
  Country: FR (occurrence: FR)
  Receive Date: 20220204
  Receipt Date: 20220204
  Transmission Date: 20220423
  Serious: Yes (Hospitalization, Other)
  Sender: FDA-Public Use
  Company Number: FR-SERVIER-S20007968

PATIENT

DRUGS (7)
  1. ONCASPAR [Suspect]
     Active Substance: PEGASPARGASE
     Indication: Acute lymphocytic leukaemia
     Dosage: 4350 IU,ON D15
     Route: 042
     Dates: start: 20200805, end: 20200805
  2. TN UNSPECIFIED [Concomitant]
     Indication: Acute lymphocytic leukaemia
     Dosage: 1720 MG, ON D1
     Route: 042
     Dates: start: 20200616
  3. TN UNSPECIFIED [Concomitant]
     Indication: Acute lymphocytic leukaemia
     Dosage: 100 MG, FROM D1 TO D14
     Route: 048
     Dates: start: 20200616
  4. TN UNSPECIFIED [Concomitant]
     Indication: Acute lymphocytic leukaemia
     Dosage: 130 MG, ON D1, D3, D4, D5, D6, D10, D11, D12, ILLEGIBLE
     Route: 042
     Dates: start: 20200618
  5. TN UNSPECIFIED [Concomitant]
     Indication: Acute lymphocytic leukaemia
     Dosage: 2.0 MG, ON D15
     Route: 042
     Dates: start: 20200805
  6. TN UNSPECIFIED [Concomitant]
     Indication: Prophylaxis
     Dosage: 500 MG
     Route: 048
     Dates: start: 20200507
  7. TN UNSPECIFIED [Concomitant]
     Indication: Prophylaxis
     Dosage: 800 MG
     Route: 048
     Dates: start: 20200507

REACTIONS (2)
  - Febrile bone marrow aplasia [Recovered/Resolved]
  - Hypersensitivity [Recovered/Resolved]

NARRATIVE: CASE EVENT DATE: 20200713
